FAERS Safety Report 25009513 (Version 1)
Quarter: 2025Q1

REPORT INFORMATION
  Report Type: Report from Study
  Country: US (occurrence: US)
  Receive Date: 20250225
  Receipt Date: 20250225
  Transmission Date: 20250408
  Serious: Yes (Death, Hospitalization, Other)
  Sender: RANBAXY
  Company Number: US-SUN PHARMACEUTICAL INDUSTRIES LTD-2025R1-496092

PATIENT
  Age: 80 Year
  Sex: Male

DRUGS (1)
  1. NICOTINIC ACID [Suspect]
     Active Substance: NIACIN
     Indication: Product used for unknown indication
     Route: 065

REACTIONS (2)
  - Hepatic encephalopathy [Fatal]
  - Acute hepatic failure [Fatal]
